FAERS Safety Report 10762385 (Version 1)
Quarter: 2015Q1

REPORT INFORMATION
  Report Type: Other
  Country: US (occurrence: US)
  Receive Date: 20150204
  Receipt Date: 20150204
  Transmission Date: 20150721
  Serious: No
  Sender: FDA-Public Use
  Company Number: US-ACORDA-ACO_102275_2014

PATIENT
  Sex: Male

DRUGS (1)
  1. AMPYRA [Suspect]
     Active Substance: DALFAMPRIDINE
     Indication: PRODUCT USED FOR UNKNOWN INDICATION
     Dosage: 10 MG, Q 12 HRS
     Route: 048

REACTIONS (6)
  - Hypokinesia [Unknown]
  - Malaise [Unknown]
  - Visual impairment [Unknown]
  - Therapy cessation [Unknown]
  - Dysgraphia [Unknown]
  - Gait disturbance [Unknown]
